FAERS Safety Report 8505668-6 (Version None)
Quarter: 2012Q3

REPORT INFORMATION
  Report Type: 
  Country: None (occurrence: None)
  Receive Date: 20120712
  Receipt Date: 20120703
  Transmission Date: 20120928
  Serious: Yes (Hospitalization, Other)
  Sender: FDA-Public Use
  Company Number: US-JNJFOC-20120701861

PATIENT
  Sex: Male
  Weight: 92.99 kg

DRUGS (8)
  1. DURAGESIC-100 [Suspect]
     Indication: NEURALGIA
     Route: 062
     Dates: start: 20080101
  2. SINGULAIR [Concomitant]
     Indication: LUNG DISORDER
     Route: 048
  3. OXYGEN [Concomitant]
     Indication: LUNG DISORDER
     Route: 065
  4. LIPITOR [Concomitant]
     Indication: CARDIAC DISORDER
     Route: 048
  5. CYCLOBENZAPRINE [Concomitant]
     Route: 048
  6. LASIX [Concomitant]
     Indication: FLUID RETENTION
     Route: 048
  7. ALPRAZOLAM [Concomitant]
     Indication: ANXIETY
     Route: 048
  8. ATENOLOL [Concomitant]
     Indication: BLOOD CHOLESTEROL
     Route: 048

REACTIONS (7)
  - IMMUNE SYSTEM DISORDER [None]
  - CORONARY ARTERY OCCLUSION [None]
  - PAIN [None]
  - DIABETES MELLITUS [None]
  - CONSTIPATION [None]
  - ADVERSE DRUG REACTION [None]
  - PRODUCT QUALITY ISSUE [None]
